FAERS Safety Report 4618718-4 (Version None)
Quarter: 2005Q1

REPORT INFORMATION
  Report Type: 
  Country: None (occurrence: None)
  Receive Date: 20050323
  Receipt Date: 20050310
  Transmission Date: 20050727
  Serious: Yes (Other)
  Sender: FDA-Public Use
  Company Number: USA041184085

PATIENT
  Age: 40 Year
  Sex: Female

DRUGS (3)
  1. STRATTERA [Suspect]
     Dosage: 100 MG DAY
     Dates: start: 20041005, end: 20041019
  2. LEXAPRO [Concomitant]
  3. WELLBUTRIN [Concomitant]

REACTIONS (2)
  - ELECTROCARDIOGRAM QT CORRECTED INTERVAL PROLONGED [None]
  - TACHYCARDIA [None]
